FAERS Safety Report 8464553-9 (Version None)
Quarter: 2012Q2

REPORT INFORMATION
  Report Type: 
  Country: None (occurrence: None)
  Receive Date: 20120626
  Receipt Date: 20120619
  Transmission Date: 20120825
  Serious: Yes (Other)
  Sender: FDA-Public Use
  Company Number: US-BRISTOL-MYERS SQUIBB COMPANY-16572638

PATIENT
  Age: 63 Year
  Sex: Female

DRUGS (1)
  1. ERBITUX [Suspect]
     Indication: NEOPLASM MALIGNANT
     Dosage: LAST TREATMENT ON 30APR

REACTIONS (2)
  - TRACHEOSTOMY [None]
  - GASTROINTESTINAL TUBE INSERTION [None]
